FAERS Safety Report 7247203-9 (Version None)
Quarter: 2011Q1

REPORT INFORMATION
  Report Type: 
  Country: None (occurrence: None)
  Receive Date: 20110127
  Receipt Date: 20110119
  Transmission Date: 20110831
  Serious: Yes (Death, Other)
  Sender: FDA-Public Use
  Company Number: DE-GENZYME-CAMP-1001309

PATIENT
  Age: 55 Year
  Sex: Male

DRUGS (10)
  1. CYCLOSPORINE [Concomitant]
     Indication: PROPHYLAXIS AGAINST GRAFT VERSUS HOST DISEASE
  2. TRIMETHOPRIM + SULFAMETHOXAZOLE [Concomitant]
     Indication: INFECTION PROPHYLAXIS
  3. CORTICOSTEROIDS [Concomitant]
     Indication: ACUTE GRAFT VERSUS HOST DISEASE
  4. BUSULFAN [Suspect]
     Indication: STEM CELL TRANSPLANT
     Dosage: UNK
     Route: 065
  5. ACYCLOVIR [Concomitant]
     Indication: INFECTION PROPHYLAXIS
  6. CAMPATH [Suspect]
     Indication: ACUTE GRAFT VERSUS HOST DISEASE
     Dosage: UNK
     Route: 042
  7. CYCLOPHOSPHAMIDE [Suspect]
     Indication: STEM CELL TRANSPLANT
     Dosage: UNK
     Route: 065
  8. MYCOPHENOLATE MOFETIL [Concomitant]
     Indication: PROPHYLAXIS AGAINST GRAFT VERSUS HOST DISEASE
  9. ANTI-THYMOCYTE GLOBULIN NOS [Concomitant]
     Indication: PROPHYLAXIS AGAINST GRAFT VERSUS HOST DISEASE
  10. FLUCONAZOLE [Concomitant]
     Indication: INFECTION PROPHYLAXIS

REACTIONS (5)
  - ROTAVIRUS INFECTION [None]
  - HUMAN POLYOMAVIRUS INFECTION [None]
  - DEATH [None]
  - STAPHYLOCOCCAL INFECTION [None]
  - ESCHERICHIA SEPSIS [None]
